FAERS Safety Report 6955354-9 (Version None)
Quarter: 2010Q3

REPORT INFORMATION
  Report Type: 
  Country: None (occurrence: None)
  Receive Date: 20100830
  Receipt Date: 20100824
  Transmission Date: 20110219
  Serious: Yes (Other)
  Sender: FDA-Public Use
  Company Number: US-BRACCO-005113

PATIENT
  Sex: Female

DRUGS (4)
  1. MAGNEVIST [Suspect]
     Indication: ANGIOGRAM
     Dates: start: 20030913, end: 20030913
  2. PROHANCE [Suspect]
     Indication: NUCLEAR MAGNETIC RESONANCE IMAGING
     Dates: start: 20071109, end: 20071109
  3. PROHANCE [Suspect]
     Indication: ANGIOGRAM
     Dates: start: 20070511, end: 20070511
  4. MULTIHANCE [Suspect]
     Indication: NUCLEAR MAGNETIC RESONANCE IMAGING
     Dates: start: 20080304, end: 20080304

REACTIONS (1)
  - NEPHROGENIC SYSTEMIC FIBROSIS [None]
